FAERS Safety Report 7219461-8 (Version None)
Quarter: 2011Q1

REPORT INFORMATION
  Report Type: 
  Country: None (occurrence: None)
  Receive Date: 20110111
  Receipt Date: 20110105
  Transmission Date: 20110831
  Serious: Yes (Other)
  Sender: FDA-Public Use
  Company Number: IE-BAXTER-2011BH000466

PATIENT
  Age: 73 Year
  Sex: Male

DRUGS (1)
  1. GAMMAGARD LIQUID [Suspect]
     Indication: PRODUCT USED FOR UNKNOWN INDICATION
     Route: 042

REACTIONS (3)
  - BLOOD PRESSURE INCREASED [None]
  - BODY TEMPERATURE INCREASED [None]
  - CHILLS [None]
